FAERS Safety Report 8776141 (Version 1)
Quarter: 2012Q4

REPORT INFORMATION
  Report Type: 
  Country: SE (occurrence: SE)
  Receive Date: 20120910
  Receipt Date: 20120910
  Transmission Date: 20130627
  Serious: Yes (Hospitalization)
  Sender: FDA-Public Use
  Company Number: SE-GLAXOSMITHKLINE-B0798403A

PATIENT
  Age: 45 Year
  Sex: Male
  Weight: 85 kg

DRUGS (2)
  1. SEROXAT [Suspect]
     Indication: ANXIETY
     Dosage: 20MG Three times per day
     Route: 065
     Dates: start: 2010, end: 2011
  2. ZYPREXA [Concomitant]
     Indication: ANXIETY
     Dosage: 10MG Per day
     Route: 065
     Dates: start: 2011, end: 2012

REACTIONS (12)
  - Depressed mood [Not Recovered/Not Resolved]
  - Anxiety [Not Recovered/Not Resolved]
  - Hyperhidrosis [Not Recovered/Not Resolved]
  - Nightmare [Not Recovered/Not Resolved]
  - Dizziness [Not Recovered/Not Resolved]
  - Headache [Not Recovered/Not Resolved]
  - Diarrhoea [Not Recovered/Not Resolved]
  - Drug ineffective [Unknown]
  - Drug withdrawal syndrome [Unknown]
  - Weight decreased [Unknown]
  - Decreased interest [Unknown]
  - Vomiting [Not Recovered/Not Resolved]
